FAERS Safety Report 4847376-9 (Version None)
Quarter: 2005Q4

REPORT INFORMATION
  Report Type: 
  Country: None (occurrence: None)
  Receive Date: 20051205
  Receipt Date: 20051122
  Transmission Date: 20060501
  Serious: Yes (Other)
  Sender: FDA-Public Use
  Company Number: 2005160415

PATIENT
  Sex: Male
  Weight: 113.3993 kg

DRUGS (4)
  1. VIAGRA [Suspect]
     Indication: ERECTILE DYSFUNCTION
     Dosage: 100 MG (100 MG, AS NECESSARY)
  2. GENERAL NUTRIENTS (GENERAL NUTRIENTS) [Suspect]
     Indication: ILL-DEFINED DISORDER
  3. AVANDIA [Concomitant]
  4. COZAAR [Concomitant]

REACTIONS (6)
  - BLOOD CHOLESTEROL INCREASED [None]
  - CYANOPSIA [None]
  - DEPRESSION [None]
  - DRUG INEFFECTIVE [None]
  - OESOPHAGEAL CARCINOMA [None]
  - RECTAL HAEMORRHAGE [None]
